FAERS Safety Report 12275915 (Version 1)
Quarter: 2016Q2

REPORT INFORMATION
  Report Type: Spontaneous
  Country: GB (occurrence: GB)
  Receive Date: 20160418
  Receipt Date: 20160418
  Transmission Date: 20160815
  Serious: Yes (Hospitalization)
  Sender: FDA-Public Use
  Company Number: GB-ACCORD-039606

PATIENT
  Age: 89 Year

DRUGS (9)
  1. SIMVASTATIN. [Suspect]
     Active Substance: SIMVASTATIN
     Indication: PRODUCT USED FOR UNKNOWN INDICATION
     Dosage: IN THE EVENING
  2. BISOPROLOL [Concomitant]
     Active Substance: BISOPROLOL
  3. CARBOMER [Concomitant]
     Active Substance: CARBOMER
     Dosage: IN THE EVENING
  4. NITRAZEPAM [Concomitant]
     Active Substance: NITRAZEPAM
     Dosage: IN THE EVENING
  5. FUROSEMIDE. [Concomitant]
     Active Substance: FUROSEMIDE
  6. PARACETAMOL [Concomitant]
     Active Substance: ACETAMINOPHEN
  7. OXYBUTYNIN [Concomitant]
     Active Substance: OXYBUTYNIN
  8. ACETYLSALICYLIC ACID [Concomitant]
     Active Substance: ASPIRIN
  9. OMEPRAZOLE. [Concomitant]
     Active Substance: OMEPRAZOLE

REACTIONS (3)
  - Hemiplegia [Unknown]
  - Dysarthria [Unknown]
  - Liver function test increased [Recovering/Resolving]
